FAERS Safety Report 23075014 (Version 4)
Quarter: 2024Q1

REPORT INFORMATION
  Report Type: Report from Study
  Country: MX (occurrence: MX)
  Receive Date: 20231017
  Receipt Date: 20240328
  Transmission Date: 20240410
  Serious: Yes (Hospitalization, Other)
  Sender: FDA-Public Use
  Company Number: MX-002147023-NVSC2021MX157432

PATIENT
  Age: 67 Year
  Sex: Male
  Weight: 75 kg

DRUGS (2)
  1. TASIGNA [Suspect]
     Active Substance: NILOTINIB
     Indication: Chronic myeloid leukaemia
     Dosage: 600 MG, QD
     Route: 048
  2. TASIGNA [Suspect]
     Active Substance: NILOTINIB
     Dosage: UNK
     Route: 048

REACTIONS (49)
  - Obstructive airways disorder [Unknown]
  - Dyspnoea [Unknown]
  - Diabetes mellitus [Unknown]
  - Pollakiuria [Unknown]
  - Blood glucose increased [Unknown]
  - Discomfort [Unknown]
  - Nerve compression [Unknown]
  - Gastrointestinal inflammation [Unknown]
  - Feeling abnormal [Unknown]
  - Nervousness [Unknown]
  - Pain in extremity [Not Recovered/Not Resolved]
  - Mood altered [Unknown]
  - Constipation [Not Recovered/Not Resolved]
  - Blood pressure increased [Unknown]
  - Diarrhoea [Unknown]
  - Anger [Unknown]
  - Choking sensation [Unknown]
  - Respiratory disorder [Unknown]
  - Dysarthria [Unknown]
  - Dysphonia [Unknown]
  - Productive cough [Unknown]
  - Influenza [Unknown]
  - Suffocation feeling [Unknown]
  - Stress [Unknown]
  - Muscle injury [Unknown]
  - Memory impairment [Unknown]
  - Inflammation of wound [Unknown]
  - Irritability [Unknown]
  - Mobility decreased [Unknown]
  - Muscle atrophy [Unknown]
  - Frustration tolerance decreased [Unknown]
  - Emotional disorder [Recovering/Resolving]
  - General physical health deterioration [Unknown]
  - Limb injury [Unknown]
  - Weight decreased [Unknown]
  - Asthenia [Unknown]
  - Gastritis [Unknown]
  - Visual impairment [Unknown]
  - Tinnitus [Unknown]
  - Fatigue [Unknown]
  - Dry mouth [Unknown]
  - Anxiety [Unknown]
  - Pain [Unknown]
  - Insomnia [Unknown]
  - Malaise [Unknown]
  - Sciatica [Unknown]
  - Skin discomfort [Unknown]
  - Inappropriate schedule of product administration [Unknown]
  - Product dose omission in error [Unknown]

NARRATIVE: CASE EVENT DATE: 20230311
